FAERS Safety Report 7904501-0 (Version None)
Quarter: 2011Q4

REPORT INFORMATION
  Report Type: 
  Country: None (occurrence: None)
  Receive Date: 20111109
  Receipt Date: 20111028
  Transmission Date: 20120403
  Serious: Yes (Hospitalization)
  Sender: FDA-Public Use
  Company Number: US-BAYER-2011-034592

PATIENT
  Age: 24 Year
  Sex: Female
  Weight: 66 kg

DRUGS (2)
  1. YAZ [Suspect]
     Indication: ACNE
     Dosage: UNK
     Dates: start: 20090101, end: 20090101
  2. YAZ [Suspect]
     Indication: ORAL CONTRACEPTION

REACTIONS (2)
  - PAIN [None]
  - PULMONARY EMBOLISM [None]
